FAERS Safety Report 5945656-7 (Version None)
Quarter: 2008Q4

REPORT INFORMATION
  Report Type: 
  Country: None (occurrence: None)
  Receive Date: 20081107
  Receipt Date: 20081029
  Transmission Date: 20090506
  Serious: Yes (Other)
  Sender: FDA-Public Use
  Company Number: US-PFIZER INC-2008093395

PATIENT
  Sex: Male
  Weight: 55.3 kg

DRUGS (13)
  1. CHANTIX [Suspect]
     Indication: SMOKING CESSATION THERAPY
     Dates: start: 20081001
  2. SEROQUEL [Suspect]
     Dates: end: 20081001
  3. EFFEXOR [Suspect]
     Dates: end: 20081001
  4. CITALOPRAM HYDROBROMIDE [Concomitant]
     Dates: start: 20081001
  5. CLONAZEPAM [Concomitant]
     Dates: start: 20081001
  6. REYATAZ [Concomitant]
  7. ALL OTHER THERAPEUTIC PRODUCTS [Concomitant]
  8. EPIVIR [Concomitant]
  9. ACETYLSALICYLIC ACID SRT [Concomitant]
  10. LIPITOR [Concomitant]
  11. LISINOPRIL [Concomitant]
  12. ALL OTHER THERAPEUTIC PRODUCTS [Concomitant]
  13. ABILIFY [Concomitant]

REACTIONS (1)
  - PSYCHIATRIC SYMPTOM [None]
